FAERS Safety Report 5155085-4 (Version None)
Quarter: 2006Q4

REPORT INFORMATION
  Report Type: 
  Country: None (occurrence: None)
  Receive Date: 20061121
  Receipt Date: 20061110
  Transmission Date: 20070319
  Serious: Yes (Hospitalization)
  Sender: FDA-Public Use
  Company Number: FR-GLAXOSMITHKLINE-B0446502A

PATIENT
  Age: 85 Year
  Sex: Female
  Weight: 74 kg

DRUGS (18)
  1. DEROXAT [Suspect]
     Indication: DEPRESSION
     Dosage: 10MG PER DAY
     Route: 048
     Dates: end: 20060919
  2. AUGMENTIN '125' [Suspect]
     Indication: INFECTION
     Route: 065
     Dates: start: 20060701, end: 20060101
  3. ORACILLINE [Suspect]
     Indication: INFECTION
     Dosage: 1IU6 PER DAY
     Route: 048
     Dates: start: 20060909, end: 20060919
  4. PREVISCAN [Suspect]
     Route: 048
     Dates: end: 20060919
  5. NEXIUM [Suspect]
     Dosage: 40MG PER DAY
     Route: 048
     Dates: end: 20060919
  6. MODOPAR [Suspect]
     Dosage: 375MG PER DAY
     Route: 048
  7. LOXEN [Suspect]
     Indication: HYPERTENSION
     Dosage: 20MG PER DAY
     Route: 048
     Dates: end: 20060919
  8. AVLOCARDYL [Concomitant]
     Indication: HYPERTENSION
     Dosage: 40MG PER DAY
  9. LEVOTHYROXINE SODIUM [Concomitant]
     Indication: HYPOTHYROIDISM
     Dosage: 40MCG PER DAY
  10. LANSOYL [Concomitant]
  11. FORLAX [Concomitant]
  12. ALUMINUM HYDROXIDE AND MAGNESIUM TRISILICATE [Concomitant]
  13. SPASFON [Concomitant]
  14. ROCEPHIN [Concomitant]
     Indication: INFECTION
     Dates: start: 20060101, end: 20060101
  15. OFLOCET [Concomitant]
     Indication: INFECTION
     Dates: start: 20060101, end: 20060101
  16. DOPAMINE HCL IN 5% DEXTROSE [Concomitant]
     Indication: PARKINSON'S DISEASE
  17. TPN [Concomitant]
     Dates: start: 20060101, end: 20060101
  18. FLAGYL [Concomitant]

REACTIONS (7)
  - COAGULATION TIME PROLONGED [None]
  - DIARRHOEA [None]
  - DRUG INTERACTION [None]
  - HYPOPROTHROMBINAEMIA [None]
  - INTERNATIONAL NORMALISED RATIO INCREASED [None]
  - OVERDOSE [None]
  - RECTAL HAEMORRHAGE [None]
